FAERS Safety Report 9274707 (Version 1)
Quarter: 2013Q2

REPORT INFORMATION
  Report Type: Spontaneous
  Country: US (occurrence: None)
  Receive Date: 20130430
  Receipt Date: 20130430
  Transmission Date: 20140414
  Serious: Yes (Hospitalization)
  Sender: FDA-Public Use
  Company Number: None

PATIENT
  Age: 55 Year
  Sex: Female
  Weight: 75.1 kg

DRUGS (1)
  1. XARELTO -RIVAROXABAN- 20 MG JANSSEN PHARMACEUTICALS [Suspect]
     Indication: THROMBOSIS PROPHYLAXIS
     Route: 048
     Dates: start: 20130418, end: 20130419

REACTIONS (1)
  - Pulmonary embolism [None]
